FAERS Safety Report 9786016 (Version 1)
Quarter: 2013Q4

REPORT INFORMATION
  Report Type: Spontaneous
  Country: CL (occurrence: CL)
  Receive Date: 20131227
  Receipt Date: 20131227
  Transmission Date: 20140711
  Serious: Yes (Disabling, Other)
  Sender: FDA-Public Use
  Company Number: CL-PFIZER INC-2013368519

PATIENT
  Age: 80 Year
  Sex: Male

DRUGS (3)
  1. XALATAN [Suspect]
     Indication: GLAUCOMA
     Dosage: 1 DF, 1X/DAY
     Route: 047
     Dates: start: 2003, end: 2012
  2. PROLOPA [Concomitant]
     Dosage: 250 MG, 3X/DAY
  3. LYNDEX [Concomitant]
     Dosage: 10 MG, 1X/DAY

REACTIONS (3)
  - Parkinson^s disease [Not Recovered/Not Resolved]
  - Bedridden [Not Recovered/Not Resolved]
  - Intraocular pressure decreased [Not Recovered/Not Resolved]
